FAERS Safety Report 9797650 (Version 3)
Quarter: 2014Q1

REPORT INFORMATION
  Report Type: Spontaneous
  Country: US (occurrence: US)
  Receive Date: 20140106
  Receipt Date: 20140228
  Transmission Date: 20141002
  Serious: No
  Sender: FDA-Public Use
  Company Number: US-PFIZER INC-2014001324

PATIENT
  Age: 75 Year
  Sex: Male
  Weight: 95.24 kg

DRUGS (10)
  1. CELEBREX [Suspect]
     Indication: PAIN IN EXTREMITY
     Dosage: 200 MG, 2X/DAY
     Route: 048
     Dates: start: 201307, end: 201311
  2. CELEBREX [Suspect]
     Dosage: 200 MG, 3X/DAY
     Route: 048
     Dates: start: 20131230, end: 20131231
  3. METFORMIN [Suspect]
     Indication: DIABETES MELLITUS
     Dosage: 1000 MG (2 TABLETS OF 500MG TOGETHER), 2X/DAY
     Route: 048
  4. NEXIUM [Concomitant]
     Dosage: UNK
  5. GEMFIBROZIL [Concomitant]
     Dosage: UNK
  6. FAMOTIDINE [Concomitant]
     Dosage: UNK
  7. PRAVASTATIN [Concomitant]
     Dosage: UNK
  8. ZOLPIDEM [Concomitant]
     Dosage: UNK
  9. FLURAZEPAM [Concomitant]
     Indication: SLEEP DISORDER
     Dosage: UNK
  10. TAMSULOSIN [Concomitant]
     Dosage: UNK

REACTIONS (6)
  - Intentional drug misuse [Unknown]
  - Poor quality drug administered [Unknown]
  - Pain in extremity [Recovered/Resolved]
  - Back pain [Recovered/Resolved]
  - Libido increased [Recovered/Resolved]
  - Blood glucose increased [Unknown]
